FAERS Safety Report 7165639-1 (Version None)
Quarter: 2010Q4

REPORT INFORMATION
  Report Type: 
  Country: None (occurrence: None)
  Receive Date: 20101215
  Receipt Date: 20091230
  Transmission Date: 20110411
  Serious: No
  Sender: FDA-Public Use
  Company Number: US-AMGEN-KDL383091

PATIENT

DRUGS (5)
  1. ENBREL [Suspect]
     Indication: RHEUMATOID ARTHRITIS
     Dosage: 50 MG, QWK
     Route: 058
     Dates: start: 20091202
  2. IRON [Concomitant]
  3. MULTI-VITAMINS [Concomitant]
  4. IBUPROFEN [Concomitant]
     Dosage: UNK UNK, PRN
  5. KETOROLAC TROMETHAMINE [Concomitant]
     Dosage: UNK UNK, PRN

REACTIONS (4)
  - IMPAIRED HEALING [None]
  - INJECTION SITE ERYTHEMA [None]
  - INJECTION SITE REACTION [None]
  - UPPER RESPIRATORY TRACT INFECTION [None]
